FAERS Safety Report 5569233-5 (Version None)
Quarter: 2007Q4

REPORT INFORMATION
  Report Type: 
  Country: None (occurrence: None)
  Receive Date: 20071220
  Receipt Date: 20070918
  Transmission Date: 20080405
  Serious: No
  Sender: FDA-Public Use
  Company Number: A0682733A

PATIENT
  Age: 75 Year
  Sex: Male

DRUGS (4)
  1. AVODART [Suspect]
     Indication: BENIGN PROSTATIC HYPERPLASIA
     Dosage: 1CAP PER DAY
     Route: 048
     Dates: start: 20070701, end: 20070917
  2. FLOMAX [Suspect]
     Dosage: .4MG PER DAY
     Route: 048
     Dates: start: 20070501
  3. HYTRIN [Suspect]
     Route: 048
  4. PROSCAR [Suspect]
     Route: 048

REACTIONS (3)
  - DIZZINESS [None]
  - HEADACHE [None]
  - HYPOTENSION [None]
